FAERS Safety Report 7154035-9 (Version None)
Quarter: 2010Q4

REPORT INFORMATION
  Report Type: 
  Country: None (occurrence: None)
  Receive Date: 20101213
  Receipt Date: 20101129
  Transmission Date: 20110411
  Serious: Yes (Other)
  Sender: FDA-Public Use
  Company Number: NL-AMGEN-NLDSP2010004513

PATIENT

DRUGS (6)
  1. ENBREL [Suspect]
     Indication: RHEUMATOID ARTHRITIS
     Dosage: 50 MG, WEEKLY
     Dates: start: 20100830, end: 20100916
  2. ENBREL [Suspect]
     Dosage: 50 MG, WEEKLY
     Route: 058
     Dates: start: 20100901, end: 20100916
  3. METHOTREXATE [Concomitant]
     Indication: RHEUMATOID ARTHRITIS
     Dosage: 25 MG, UNK
     Route: 058
     Dates: start: 20080101
  4. DICLOFENAC [Concomitant]
     Indication: RHEUMATOID ARTHRITIS
     Dosage: 75 MG, 2X/DAY
     Route: 048
     Dates: start: 20090101
  5. DICLOFENAC [Concomitant]
     Dosage: 75 MG, AS NEEDED
     Route: 048
     Dates: start: 20090101
  6. FOLIC ACID [Concomitant]
     Indication: RHEUMATOID ARTHRITIS
     Dosage: 5 MG, UNK
     Route: 048

REACTIONS (7)
  - APHTHOUS STOMATITIS [None]
  - IMPAIRED HEALING [None]
  - INFECTION [None]
  - NASOPHARYNGITIS [None]
  - OSTEITIS [None]
  - PHARYNGITIS [None]
  - RESPIRATORY TRACT INFECTION [None]
